FAERS Safety Report 16946476 (Version 1)
Quarter: 2019Q4

REPORT INFORMATION
  Report Type: Spontaneous
  Country: US (occurrence: US)
  Receive Date: 20190830
  Receipt Date: 20190830
  Transmission Date: 20200122
  Serious: Yes (Hospitalization)
  Sender: FDA-Public Use
  Company Number: None

PATIENT
  Age: 65 Year
  Sex: Male

DRUGS (1)
  1. LENVATINIB [Suspect]
     Active Substance: LENVATINIB
     Indication: PALMAR-PLANTAR ERYTHRODYSAESTHESIA SYNDROME
     Route: 048
     Dates: start: 20190226, end: 20190627

REACTIONS (10)
  - Product use issue [None]
  - Palmar-plantar erythrodysaesthesia syndrome [None]
  - Skin ulcer [None]
  - Hypertensive emergency [None]
  - Osteomyelitis [None]
  - Mental status changes [None]
  - Clostridium test positive [None]
  - Therapy cessation [None]
  - Diarrhoea [None]
  - Alcohol use [None]

NARRATIVE: CASE EVENT DATE: 20190628
